FAERS Safety Report 4413606-0 (Version None)
Quarter: 2004Q3

REPORT INFORMATION
  Report Type: 
  Country: None (occurrence: None)
  Receive Date: 20040728
  Receipt Date: 20040719
  Transmission Date: 20050211
  Serious: Yes (Hospitalization)
  Sender: FDA-Public Use
  Company Number: CA_031106377

PATIENT
  Age: 68 Year
  Sex: Female

DRUGS (9)
  1. GEMCITABINE HYDROCHLORIDE-IV (GEMCITABINE) [Suspect]
     Indication: PANCREATIC CARCINOMA METASTATIC
     Dates: start: 20030416, end: 20030904
  2. OTHER PHARMA COMPANY INVESTIGATIONAL DRUG [Suspect]
     Indication: PANCREATIC CARCINOMA METASTATIC
     Dosage: 800 MG
     Dates: start: 20030417, end: 20030911
  3. LACTULOSE [Concomitant]
  4. COLACE (DOCUSATE SODIUM) [Concomitant]
  5. MS CONTIN [Concomitant]
  6. ATENOLOL [Concomitant]
  7. SYNTHROID [Concomitant]
  8. DOMPERIDONE [Concomitant]
  9. COTAZYM (PANCREATIN) [Concomitant]

REACTIONS (13)
  - ABDOMINAL PAIN [None]
  - ALANINE AMINOTRANSFERASE INCREASED [None]
  - ASCITES [None]
  - ASPARTATE AMINOTRANSFERASE INCREASED [None]
  - BILIARY TRACT DISORDER [None]
  - BLOOD ALBUMIN DECREASED [None]
  - BLOOD ALKALINE PHOSPHATASE INCREASED [None]
  - BLOOD BILIRUBIN INCREASED [None]
  - BLOOD SODIUM DECREASED [None]
  - CHOLANGITIS [None]
  - CONSTIPATION [None]
  - NAUSEA [None]
  - PYREXIA [None]
